FAERS Safety Report 6699739-7 (Version None)
Quarter: 2010Q2

REPORT INFORMATION
  Report Type: 
  Country: None (occurrence: None)
  Receive Date: 20100427
  Receipt Date: 20100427
  Transmission Date: 20101027
  Serious: No
  Sender: FDA-Public Use
  Company Number: None

PATIENT
  Age: 74 Year
  Sex: Female
  Weight: 64.4108 kg

DRUGS (1)
  1. RED BLOOD CELL LEUKOREDUCED SINGLE RED CELL UNIT  AMERICAN RED CROSS [Suspect]
     Indication: ANAEMIA
     Dosage: APPROXIMATELY 350 CC
     Dates: start: 20100120, end: 20100120

REACTIONS (7)
  - BLOOD PRESSURE SYSTOLIC INCREASED [None]
  - OEDEMA [None]
  - PYREXIA [None]
  - RALES [None]
  - RESPIRATORY RATE INCREASED [None]
  - TRANSFUSION-RELATED ACUTE LUNG INJURY [None]
  - WHEEZING [None]
